FAERS Safety Report 6993709-7 (Version None)
Quarter: 2010Q3

REPORT INFORMATION
  Report Type: 
  Country: None (occurrence: None)
  Receive Date: 20100917
  Receipt Date: 20100719
  Transmission Date: 20110219
  Serious: No
  Sender: FDA-Public Use
  Company Number: US-ASTRAZENECA-2010SE33630

PATIENT
  Age: 37 Year
  Sex: Female
  Weight: 71.7 kg

DRUGS (2)
  1. SEROQUEL XR [Suspect]
     Indication: BIPOLAR DISORDER
     Route: 048
  2. PROZAC [Concomitant]
     Indication: BIPOLAR DISORDER

REACTIONS (3)
  - DRUG INEFFECTIVE [None]
  - DYSKINESIA [None]
  - MUSCLE SPASMS [None]
